FAERS Safety Report 24803015 (Version 1)
Quarter: 2025Q1

REPORT INFORMATION
  Report Type: Spontaneous
  Country: SE (occurrence: SE)
  Receive Date: 20250103
  Receipt Date: 20250103
  Transmission Date: 20250409
  Serious: Yes (Death, Other)
  Sender: CELLTRION
  Company Number: SE-CELLTRION INC.-2022SE017262

PATIENT

DRUGS (8)
  1. RITUXIMAB [Interacting]
     Active Substance: RITUXIMAB
     Indication: Rheumatic disorder
     Route: 065
  2. RITUXIMAB [Interacting]
     Active Substance: RITUXIMAB
     Indication: Rheumatoid arthritis
     Route: 042
     Dates: start: 20200526
  3. RITUXIMAB [Interacting]
     Active Substance: RITUXIMAB
     Route: 042
     Dates: start: 20210929
  4. PFIZER-BIONTECH COVID-19 VACCINE [Interacting]
     Active Substance: TOZINAMERAN
     Indication: COVID-19 prophylaxis
     Route: 065
  5. PREDNISOLONE [Interacting]
     Active Substance: PREDNISOLONE
     Indication: Rheumatoid arthritis
     Route: 065
  6. TOZINAMERAN [Interacting]
     Active Substance: TOZINAMERAN
     Indication: COVID-19 prophylaxis
     Route: 065
     Dates: start: 20210319
  7. TOZINAMERAN [Interacting]
     Active Substance: TOZINAMERAN
     Route: 065
     Dates: start: 20210416
  8. TOZINAMERAN [Interacting]
     Active Substance: TOZINAMERAN
     Route: 065
     Dates: start: 20211005

REACTIONS (5)
  - Intestinal haemorrhage [Fatal]
  - Vaccine interaction [Fatal]
  - COVID-19 [Fatal]
  - Drug interaction [Unknown]
  - Vaccination failure [Recovered/Resolved]
